FAERS Safety Report 4514689-X (Version None)
Quarter: 2004Q4

REPORT INFORMATION
  Report Type: 
  Country: None (occurrence: None)
  Receive Date: 20041126
  Receipt Date: 20041110
  Transmission Date: 20050328
  Serious: Yes (Hospitalization)
  Sender: FDA-Public Use
  Company Number: 2004-FF-00635FF

PATIENT
  Age: 43 Year
  Sex: Male

DRUGS (2)
  1. VIRAMUNE [Suspect]
     Indication: HIV INFECTION
     Route: 048
     Dates: start: 19991001
  2. COMBIVIR [Concomitant]

REACTIONS (14)
  - ACUTE SINUSITIS [None]
  - ARTHRALGIA [None]
  - ASEPTIC NECROSIS BONE [None]
  - ESCHERICHIA URINARY TRACT INFECTION [None]
  - GENERAL PHYSICAL HEALTH DETERIORATION [None]
  - HEADACHE [None]
  - JAUNDICE CHOLESTATIC [None]
  - LUNG DISORDER [None]
  - OROPHARYNGEAL CANDIDIASIS [None]
  - PAIN [None]
  - PNEUMOCYSTIS CARINII PNEUMONIA [None]
  - PRODUCTIVE COUGH [None]
  - PYREXIA [None]
  - WEIGHT DECREASED [None]
